FAERS Safety Report 7457691-0 (Version None)
Quarter: 2011Q2

REPORT INFORMATION
  Report Type: 
  Country: None (occurrence: None)
  Receive Date: 20110504
  Receipt Date: 20110419
  Transmission Date: 20111010
  Serious: Yes (Other)
  Sender: FDA-Public Use
  Company Number: US-BAYER-200934360NA

PATIENT
  Sex: Male

DRUGS (19)
  1. COREG [Concomitant]
     Indication: PRODUCT USED FOR UNKNOWN INDICATION
     Dosage: 6.25 MG, BID
     Route: 048
     Dates: start: 20040731
  2. LISINOPRIL AND HYDROCHLOROTHIAZIDE [Concomitant]
  3. PLAVIX [Concomitant]
  4. HEPARIN [Concomitant]
     Indication: PRODUCT USED FOR UNKNOWN INDICATION
     Dosage: UNK
     Route: 042
     Dates: start: 20040730
  5. VIOXX [Concomitant]
  6. VECURONIUM BROMIDE [Concomitant]
     Dosage: 10 MG, UNK
     Dates: start: 20040803
  7. TRASYLOL [Suspect]
     Indication: MITRAL VALVE REPLACEMENT
  8. DILTIAZEM [Concomitant]
  9. VERSED [Concomitant]
     Dosage: UNK
     Dates: start: 20040803
  10. LASIX [Concomitant]
     Indication: PRODUCT USED FOR UNKNOWN INDICATION
     Dosage: 40 MG MULTIPLE DOSES ORAL/IV
     Dates: start: 20040728
  11. ROCURONIUM [Concomitant]
     Dosage: UNK
     Dates: start: 20040803
  12. CEFUROXIME [Concomitant]
     Dosage: 1.5 G, UNK
     Route: 042
     Dates: start: 20040803
  13. HEPARIN [Concomitant]
     Dosage: 35000 U, UNK
     Route: 042
     Dates: start: 20040803
  14. LIPITOR [Concomitant]
  15. SUFENTA PRESERVATIVE FREE [Concomitant]
     Dosage: UNK
     Dates: start: 20040803
  16. TRASYLOL [Suspect]
     Indication: CORONARY ARTERY BYPASS
     Dosage: 1ML TEST DOSE, 100CC HUNG
     Dates: start: 20040803, end: 20040803
  17. AVANDIA [Concomitant]
  18. ISOFLURANE [Concomitant]
     Dosage: UNK
     Dates: start: 20040803
  19. SPIRONOLACTONE [Concomitant]
     Indication: PRODUCT USED FOR UNKNOWN INDICATION
     Dosage: 25 MG, UNK
     Route: 048
     Dates: start: 20040728

REACTIONS (12)
  - FEAR [None]
  - NERVOUSNESS [None]
  - INJURY [None]
  - UNEVALUABLE EVENT [None]
  - MULTI-ORGAN FAILURE [None]
  - RENAL INJURY [None]
  - ANXIETY [None]
  - DEPRESSION [None]
  - EMOTIONAL DISTRESS [None]
  - PAIN [None]
  - ANHEDONIA [None]
  - RENAL FAILURE [None]
